FAERS Safety Report 18848840 (Version 2)
Quarter: 2021Q1

REPORT INFORMATION
  Report Type: Spontaneous
  Country: US (occurrence: US)
  Receive Date: 20210205
  Receipt Date: 20210210
  Transmission Date: 20210419
  Serious: No
  Sender: FDA-Public Use
  Company Number: US-ASTRAZENECA-2021A008113

PATIENT
  Sex: Female
  Weight: 83.9 kg

DRUGS (1)
  1. BYDUREON [Suspect]
     Active Substance: EXENATIDE
     Indication: TYPE 2 DIABETES MELLITUS
     Route: 058

REACTIONS (11)
  - Injection site mass [Not Recovered/Not Resolved]
  - Pain in extremity [Unknown]
  - Product administration error [Unknown]
  - Injection site swelling [Not Recovered/Not Resolved]
  - Intentional device misuse [Not Recovered/Not Resolved]
  - Injection site bruising [Not Recovered/Not Resolved]
  - Weight decreased [Unknown]
  - Device issue [Unknown]
  - Fatigue [Not Recovered/Not Resolved]
  - Injection site nodule [Not Recovered/Not Resolved]
  - Injection site pain [Not Recovered/Not Resolved]
